FAERS Safety Report 4316735-5 (Version None)
Quarter: 2004Q1

REPORT INFORMATION
  Report Type: 
  Country: None (occurrence: None)
  Receive Date: 20040311
  Receipt Date: 20011019
  Transmission Date: 20041129
  Serious: Yes (Other)
  Sender: FDA-Public Use
  Company Number: NSADSS2001032401

PATIENT
  Age: 29 Year
  Sex: Female

DRUGS (1)
  1. REMICADE [Suspect]
     Indication: CROHN'S DISEASE
     Dosage: ,1 IN 1 AS NECESSARY, INTRAVENOUS DRIP
     Route: 041

REACTIONS (1)
  - TUBERCULIN TEST POSITIVE [None]
